FAERS Safety Report 10524929 (Version 1)
Quarter: 2014Q4

REPORT INFORMATION
  Report Type: Spontaneous
  Country: US (occurrence: None)
  Receive Date: 20141015
  Receipt Date: 20141015
  Transmission Date: 20150528
  Serious: Yes (Other)
  Sender: FDA-Public Use
  Company Number: AE-090258001

PATIENT
  Age: 50 Year
  Sex: Female

DRUGS (1)
  1. ALENDRONATE SODIUM. [Suspect]
     Active Substance: ALENDRONATE SODIUM
     Indication: OSTEOPOROSIS
     Dosage: TOOK DRUG FOR 5-6 YEARS??1, WEEKLY, ORAL
     Route: 048

REACTIONS (7)
  - Throat irritation [None]
  - Foreign body [None]
  - Oropharyngeal pain [None]
  - Drooling [None]
  - Dyspnoea [None]
  - Cough [None]
  - Speech disorder [None]

NARRATIVE: CASE EVENT DATE: 20140812
